FAERS Safety Report 7056442-1 (Version None)
Quarter: 2010Q4

REPORT INFORMATION
  Report Type: 
  Country: None (occurrence: None)
  Receive Date: 20101021
  Receipt Date: 20101012
  Transmission Date: 20110411
  Serious: Yes (Hospitalization)
  Sender: FDA-Public Use
  Company Number: DE-ROCHE-733456

PATIENT
  Sex: Female
  Weight: 53 kg

DRUGS (2)
  1. BEVACIZUMAB [Suspect]
     Indication: BREAST CANCER
     Dosage: LAST DOSE PRIOR TO SAE: 29 APRIL 2010.  ON DAY 1 OF A 21 DAY CYCLE
     Route: 042
     Dates: start: 20090709
  2. CAPECITABINE [Suspect]
     Indication: BREAST CANCER
     Dosage: LAST DOSE PRIOR TO SAE: 28 APRIL 2010. ON DAYS 1 TO 14 OF A 21 DAY CYCLE
     Route: 048
     Dates: start: 20090709

REACTIONS (1)
  - RENAL DISORDER [None]
